FAERS Safety Report 13795041 (Version 1)
Quarter: 2017Q3

REPORT INFORMATION
  Report Type: Report from Study
  Country: DE (occurrence: DE)
  Receive Date: 20170726
  Receipt Date: 20170726
  Transmission Date: 20171127
  Serious: Yes (Other)
  Sender: FDA-Public Use
  Company Number: PHHY2017DE006999

PATIENT
  Sex: Male
  Weight: 80 kg

DRUGS (18)
  1. COSENTYX [Suspect]
     Active Substance: SECUKINUMAB
     Indication: PSORIASIS
     Dosage: 300 MG (PER APPLICATION)
     Route: 065
     Dates: start: 20160822
  2. XARELTO [Concomitant]
     Active Substance: RIVAROXABAN
     Indication: PULMONARY EMBOLISM
  3. MOMEGALEN [Concomitant]
     Indication: PSORIASIS
     Dosage: UNK
     Route: 061
     Dates: start: 20160404
  4. SALICYLVASELIN [Concomitant]
     Indication: PSORIASIS
     Dosage: UNK
     Route: 061
     Dates: start: 20080114
  5. COSENTYX [Suspect]
     Active Substance: SECUKINUMAB
     Dosage: 300 MG (PER APPLICATION)
     Route: 065
     Dates: start: 20161213
  6. DAIVOBET [Concomitant]
     Active Substance: BETAMETHASONE DIPROPIONATE\CALCIPOTRIENE
     Indication: PSORIASIS
     Dosage: UNK
     Route: 061
     Dates: start: 20030704
  7. SALICYLVASELIN [Concomitant]
     Dosage: UNK
     Route: 061
     Dates: start: 19970716
  8. COSENTYX [Suspect]
     Active Substance: SECUKINUMAB
     Dosage: 300 MG (PER APPLICATION)
     Route: 065
     Dates: start: 20160829
  9. COSENTYX [Suspect]
     Active Substance: SECUKINUMAB
     Dosage: 300 MG (PER APPLICATION)
     Route: 065
     Dates: end: 20170116
  10. DAIVOBET [Concomitant]
     Active Substance: BETAMETHASONE DIPROPIONATE\CALCIPOTRIENE
     Dosage: UNK
     Route: 061
     Dates: start: 20160727
  11. CANDESARTAN. [Concomitant]
     Active Substance: CANDESARTAN
     Indication: HYPERTENSION
     Dosage: 32 MG, QD
     Route: 048
     Dates: start: 20150101
  12. COSENTYX [Suspect]
     Active Substance: SECUKINUMAB
     Dosage: 300 MG (PER APPLICATION)
     Route: 065
     Dates: start: 20161012
  13. VOLTAREN RESINAT [Concomitant]
     Active Substance: DICLOFENAC
     Indication: MUSCULOSKELETAL DISCOMFORT
     Dosage: 75 MG, QD
     Route: 048
     Dates: start: 20160626, end: 20161011
  14. COSENTYX [Suspect]
     Active Substance: SECUKINUMAB
     Dosage: 300 MG (PER APPLICATION)
     Route: 065
     Dates: start: 20161114
  15. XARELTO [Concomitant]
     Active Substance: RIVAROXABAN
     Indication: THROMBOSIS
     Dosage: UNK UNK, QD
     Route: 048
     Dates: start: 20150112
  16. CALCIPOTRIENE AND BETAMETHASONE DIPROPIONATE [Concomitant]
     Active Substance: BETAMETHASONE DIPROPIONATE\CALCIPOTRIENE
     Indication: PSORIASIS
     Dosage: UNK UNK, PRN
     Route: 061
     Dates: start: 20160627
  17. COSENTYX [Suspect]
     Active Substance: SECUKINUMAB
     Dosage: 300 MG (PER APPLICATION)
     Route: 065
     Dates: start: 20160905
  18. COSENTYX [Suspect]
     Active Substance: SECUKINUMAB
     Dosage: 300 MG (PER APPLICATION)
     Route: 065
     Dates: start: 20160912

REACTIONS (5)
  - Blood creatinine increased [Not Recovered/Not Resolved]
  - Actinic keratosis [Not Recovered/Not Resolved]
  - Renal failure [Not Recovered/Not Resolved]
  - Blood creatinine increased [Recovered/Resolved]
  - Nasopharyngitis [Recovered/Resolved]

NARRATIVE: CASE EVENT DATE: 20161004
